FAERS Safety Report 11884518 (Version 1)
Quarter: 2016Q1

REPORT INFORMATION
  Report Type: Spontaneous
  Country: US (occurrence: US)
  Receive Date: 20160104
  Receipt Date: 20160104
  Transmission Date: 20160526
  Serious: No
  Sender: FDA-Public Use
  Company Number: US-ASTRAZENECA-2015SF31038

PATIENT
  Sex: Female

DRUGS (2)
  1. PRILOSEC [Suspect]
     Active Substance: OMEPRAZOLE MAGNESIUM
     Indication: REFLUX LARYNGITIS
     Route: 048
  2. PRILOSEC [Suspect]
     Active Substance: OMEPRAZOLE MAGNESIUM
     Indication: REFLUX LARYNGITIS
     Route: 048
     Dates: start: 2012

REACTIONS (9)
  - Hypokinesia [Unknown]
  - Throat irritation [Unknown]
  - Osteopenia [Unknown]
  - Epiglottitis obstructive [Unknown]
  - Vocal cord disorder [Unknown]
  - Laceration [Unknown]
  - Gastric disorder [Unknown]
  - Product use issue [Unknown]
  - Off label use [Unknown]
